FAERS Safety Report 19704393 (Version 1)
Quarter: 2021Q3

REPORT INFORMATION
  Report Type: Spontaneous
  Country: TR (occurrence: TR)
  Receive Date: 20210816
  Receipt Date: 20210816
  Transmission Date: 20211014
  Serious: Yes (Death, Hospitalization, Other)
  Sender: FDA-Public Use
  Company Number: TR-ALKEM LABORATORIES LIMITED-TR-ALKEM-2021-05092

PATIENT
  Age: 17 Year
  Sex: Male

DRUGS (1)
  1. METFORMIN HYDROCHLORIDE. [Suspect]
     Active Substance: METFORMIN HYDROCHLORIDE
     Indication: TYPE 1 DIABETES MELLITUS
     Dosage: 500 MILLIGRAM
     Route: 065

REACTIONS (8)
  - Toxicity to various agents [Fatal]
  - Lactic acidosis [Fatal]
  - Diabetic ketoacidotic hyperglycaemic coma [Fatal]
  - Hyperkalaemia [Fatal]
  - Mitochondrial toxicity [Fatal]
  - Rhabdomyolysis [Fatal]
  - Multiple organ dysfunction syndrome [Fatal]
  - Thrombocytopenia [Fatal]
